FAERS Safety Report 6643273-7 (Version None)
Quarter: 2010Q1

REPORT INFORMATION
  Report Type: 
  Country: None (occurrence: None)
  Receive Date: 20100319
  Receipt Date: 20100309
  Transmission Date: 20100710
  Serious: Yes (Other)
  Sender: FDA-Public Use
  Company Number: US-PFIZER INC-2010031435

PATIENT
  Sex: Female
  Weight: 92.063 kg

DRUGS (2)
  1. ZOLOFT [Suspect]
     Indication: DEPRESSION
     Dosage: 50 MG, 1X/DAY
     Route: 048
     Dates: start: 20090701
  2. TYLENOL-500 [Concomitant]
     Dosage: UNK

REACTIONS (8)
  - DECREASED APPETITE [None]
  - FATIGUE [None]
  - FLUSHING [None]
  - HEADACHE [None]
  - HEPATIC ENZYME ABNORMAL [None]
  - INFLUENZA LIKE ILLNESS [None]
  - MYALGIA [None]
  - PAIN [None]
